FAERS Safety Report 6738475-5 (Version None)
Quarter: 2010Q2

REPORT INFORMATION
  Report Type: 
  Country: None (occurrence: None)
  Receive Date: 20100524
  Receipt Date: 20100512
  Transmission Date: 20101027
  Serious: Yes (Hospitalization, Congenital Anomaly, Other)
  Sender: FDA-Public Use
  Company Number: PHHY2008CH22529

PATIENT
  Sex: Male
  Weight: 3 kg

DRUGS (1)
  1. DIOVAN [Suspect]
     Indication: HYPERTENSION
     Dosage: MATERNAL DOSE: 80MG/DAY
     Route: 064
     Dates: start: 20071101

REACTIONS (19)
  - ANURIA [None]
  - BLOOD CREATININE INCREASED [None]
  - BLOOD UREA INCREASED [None]
  - CYANOSIS [None]
  - CYANOSIS NEONATAL [None]
  - DRUG EXPOSURE DURING PREGNANCY [None]
  - FATIGUE [None]
  - GENERALISED OEDEMA [None]
  - HYPERBILIRUBINAEMIA [None]
  - HYPOTENSION [None]
  - NEPHROPATHY [None]
  - OLIGOHYDRAMNIOS [None]
  - PREMATURE BABY [None]
  - PROTEINURIA [None]
  - RENAL FAILURE NEONATAL [None]
  - RENAL HYPERTROPHY [None]
  - RENAL TUBULAR DISORDER [None]
  - RESPIRATORY DISORDER [None]
  - TACHYPNOEA [None]
